FAERS Safety Report 8967940 (Version 2)
Quarter: 2013Q1

REPORT INFORMATION
  Report Type: Spontaneous
  Country: US (occurrence: US)
  Receive Date: 20121217
  Receipt Date: 20130115
  Transmission Date: 20140127
  Serious: Yes (Hospitalization)
  Sender: FDA-Public Use
  Company Number: US-BAYER-2012-130337

PATIENT
  Age: 21 Year
  Sex: Female
  Weight: 86.98 kg

DRUGS (4)
  1. YASMIN [Suspect]
  2. WELLBUTRIN XL [Concomitant]
  3. FLUOXETINE HCL [Concomitant]
     Dosage: 20 MG, UNK
  4. VICODIN [Concomitant]
     Indication: PAIN

REACTIONS (1)
  - Pulmonary embolism [None]
